FAERS Safety Report 13505354 (Version 1)
Quarter: 2017Q2

REPORT INFORMATION
  Report Type: Spontaneous
  Country: US (occurrence: US)
  Receive Date: 20170502
  Receipt Date: 20170502
  Transmission Date: 20170830
  Serious: No
  Sender: FDA-Public Use
  Company Number: US-BAYER-2017-082417

PATIENT
  Age: 57 Year
  Sex: Female

DRUGS (1)
  1. GADAVIST [Suspect]
     Active Substance: GADOBUTROL
     Indication: METASTATIC NEOPLASM
     Dosage: 8.5 ML, ONCE
     Dates: start: 20170427, end: 20170427

REACTIONS (4)
  - Dysphonia [None]
  - Asthma [None]
  - Sneezing [None]
  - Urticaria [None]

NARRATIVE: CASE EVENT DATE: 20170427
